FAERS Safety Report 10056195 (Version 3)
Quarter: 2014Q4

REPORT INFORMATION
  Report Type: Spontaneous
  Country: US (occurrence: US)
  Receive Date: 20140403
  Receipt Date: 20141121
  Transmission Date: 20150528
  Serious: Yes (Hospitalization, Other)
  Sender: FDA-Public Use
  Company Number: US-ASTRAZENECA-2014SE06709

PATIENT
  Age: 73 Year
  Sex: Female
  Weight: 45.8 kg

DRUGS (15)
  1. COUGH MEDICATION [Concomitant]
     Active Substance: UNSPECIFIED INGREDIENT
  2. CLOPIDOGREL [Concomitant]
     Active Substance: CLOPIDOGREL BISULFATE
  3. CRESTOR [Suspect]
     Active Substance: ROSUVASTATIN CALCIUM
     Route: 048
     Dates: start: 2011
  4. BRILINTA [Suspect]
     Active Substance: TICAGRELOR
     Indication: VASCULAR GRAFT
     Dosage: TWO TIMES A DAY
     Route: 048
     Dates: start: 2011
  5. BRILINTA [Suspect]
     Active Substance: TICAGRELOR
     Indication: THROMBOSIS PROPHYLAXIS
     Dosage: TWO TIMES A DAY
     Route: 048
     Dates: start: 2011
  6. BRILINTA [Suspect]
     Active Substance: TICAGRELOR
     Indication: ANGIOPATHY
     Dosage: TWO TIMES A DAY
     Route: 048
     Dates: start: 2011
  7. BRILINTA [Suspect]
     Active Substance: TICAGRELOR
     Indication: ANGIOPATHY
     Route: 048
     Dates: start: 2012
  8. BRILINTA [Suspect]
     Active Substance: TICAGRELOR
     Indication: THROMBOSIS PROPHYLAXIS
     Route: 048
     Dates: start: 2012
  9. ANTI-HISTAMINE [Concomitant]
     Active Substance: ANTIHISTAMINES NOS
     Dates: start: 20140325
  10. IODINE [Suspect]
     Active Substance: IODINE
     Route: 065
  11. BRILINTA [Suspect]
     Active Substance: TICAGRELOR
     Indication: VASCULAR GRAFT
     Route: 048
     Dates: start: 2012
  12. ASPIRIN. [Suspect]
     Active Substance: ASPIRIN
     Indication: THROMBOSIS PROPHYLAXIS
     Route: 048
     Dates: start: 2012
  13. VITAMINS [Concomitant]
     Active Substance: VITAMINS
  14. HERBS [Concomitant]
  15. PLAVIX [Concomitant]
     Active Substance: CLOPIDOGREL BISULFATE

REACTIONS (25)
  - Skin injury [Unknown]
  - Feeling abnormal [Unknown]
  - Arthralgia [Unknown]
  - Gingival bleeding [Recovered/Resolved]
  - Iodine allergy [Unknown]
  - Mouth haemorrhage [Unknown]
  - Device breakage [Unknown]
  - Myalgia [Unknown]
  - Anaphylactic shock [Unknown]
  - Syncope [Unknown]
  - Memory impairment [Unknown]
  - Haemorrhage [Recovering/Resolving]
  - Lung infection [Not Recovered/Not Resolved]
  - Pruritus [Unknown]
  - Abasia [Unknown]
  - Epistaxis [Not Recovered/Not Resolved]
  - Pain [Unknown]
  - Contusion [Not Recovered/Not Resolved]
  - Petechiae [Unknown]
  - Lip haemorrhage [Unknown]
  - Chest pain [Not Recovered/Not Resolved]
  - Weight decreased [Unknown]
  - Haematochezia [Unknown]
  - Thrombosis [Not Recovered/Not Resolved]
  - Joint stiffness [Unknown]

NARRATIVE: CASE EVENT DATE: 2012
